FAERS Safety Report 6376095-5 (Version None)
Quarter: 2009Q3

REPORT INFORMATION
  Report Type: 
  Country: None (occurrence: None)
  Receive Date: 20090921
  Receipt Date: 20090916
  Transmission Date: 20100115
  Serious: Yes (Death, Hospitalization)
  Sender: FDA-Public Use
  Company Number: 2008SP025637

PATIENT
  Age: 63 Year
  Sex: Male
  Weight: 60 kg

DRUGS (16)
  1. TEMODAL [Suspect]
     Indication: GLIOBLASTOMA MULTIFORME
     Dosage: 150 MG/M2; QD; PO
     Route: 048
     Dates: start: 20070214, end: 20070218
  2. TEMODAL [Suspect]
     Indication: GLIOBLASTOMA MULTIFORME
     Dosage: 150 MG/M2; QD; PO
     Route: 048
     Dates: start: 20070316, end: 20070320
  3. TEMODAL [Suspect]
     Indication: GLIOBLASTOMA MULTIFORME
     Dosage: 150 MG/M2; QD; PO
     Route: 048
     Dates: start: 20070416, end: 20070420
  4. TEMODAL [Suspect]
     Indication: GLIOBLASTOMA MULTIFORME
     Dosage: 150 MG/M2; QD; PO
     Route: 048
     Dates: start: 20070618, end: 20070622
  5. TEMODAL [Suspect]
     Indication: GLIOBLASTOMA MULTIFORME
     Dosage: 150 MG/M2; QD; PO
     Route: 048
     Dates: start: 20070727, end: 20070731
  6. TEMODAL [Suspect]
     Indication: GLIOBLASTOMA MULTIFORME
     Dosage: 150 MG/M2; QD; PO
     Route: 048
     Dates: start: 20071010, end: 20071014
  7. TEMODAL [Suspect]
     Indication: GLIOBLASTOMA MULTIFORME
     Dosage: 150 MG/M2; QD; PO
     Route: 048
     Dates: start: 20071121, end: 20071125
  8. TEMODAL [Suspect]
     Indication: GLIOBLASTOMA MULTIFORME
     Dosage: 150 MG/M2; QD; PO
     Route: 048
     Dates: start: 20080130, end: 20080203
  9. SELENICA-R [Concomitant]
  10. BLOPRESS [Concomitant]
  11. NORVASC [Concomitant]
  12. TENORMIN [Concomitant]
  13. MAGNESIUM OXIDE [Concomitant]
  14. NASEA-OD [Concomitant]
  15. RISPERDAL [Concomitant]
  16. CALONAL [Concomitant]

REACTIONS (8)
  - BLOOD ALBUMIN DECREASED [None]
  - DISEASE PROGRESSION [None]
  - GASTRIC ULCER [None]
  - GLIOBLASTOMA MULTIFORME [None]
  - HAEMATOCRIT DECREASED [None]
  - HAEMOGLOBIN DECREASED [None]
  - RED BLOOD CELL COUNT DECREASED [None]
  - RESTLESSNESS [None]
